FAERS Safety Report 5410342-9 (Version None)
Quarter: 2007Q3

REPORT INFORMATION
  Report Type: 
  Country: None (occurrence: None)
  Receive Date: 20070808
  Receipt Date: 20070425
  Transmission Date: 20080115
  Serious: Yes (Hospitalization)
  Sender: FDA-Public Use
  Company Number: PHBS2007JP12478

PATIENT
  Age: 70 Year
  Sex: Male

DRUGS (3)
  1. VISUDYNE [Suspect]
     Indication: MACULAR DEGENERATION
     Dates: start: 20070201, end: 20070201
  2. ALLOPURINOL [Concomitant]
  3. BEZATOL- SLOW RELEASE [Concomitant]

REACTIONS (1)
  - PANCREATITIS ACUTE [None]
